FAERS Safety Report 15351016 (Version 1)
Quarter: 2018Q3

REPORT INFORMATION
  Report Type: Report from Study
  Country: CN (occurrence: CN)
  Receive Date: 20180905
  Receipt Date: 20180905
  Transmission Date: 20181010
  Serious: Yes (Other)
  Sender: FDA-Public Use
  Company Number: CN-ROCHE-2180040

PATIENT
  Sex: Female

DRUGS (6)
  1. PACLITAXEL. [Suspect]
     Active Substance: PACLITAXEL
     Indication: MALIGNANT PLEURAL EFFUSION
     Route: 065
  2. BEVACIZUMAB. [Suspect]
     Active Substance: BEVACIZUMAB
     Indication: MALIGNANT ASCITES
     Route: 033
  3. CISPLATIN. [Suspect]
     Active Substance: CISPLATIN
     Indication: MALIGNANT PLEURAL EFFUSION
     Route: 065
  4. DEXAMETHASONE. [Concomitant]
     Active Substance: DEXAMETHASONE
     Dosage: BEFORE BEVACIZUMAB USED
     Route: 040
  5. CISPLATIN. [Suspect]
     Active Substance: CISPLATIN
     Indication: ASCITES
  6. PACLITAXEL. [Suspect]
     Active Substance: PACLITAXEL
     Indication: ASCITES

REACTIONS (3)
  - Off label use [Unknown]
  - Intestinal obstruction [Unknown]
  - Intentional product use issue [Unknown]
